FAERS Safety Report 9366455 (Version 1)
Quarter: 2013Q2

REPORT INFORMATION
  Report Type: Spontaneous
  Country: US (occurrence: None)
  Receive Date: 20130620
  Receipt Date: 20130620
  Transmission Date: 20140414
  Serious: Yes (Other)
  Sender: FDA-Public Use
  Company Number: IDR-00767

PATIENT
  Age: 13 Year
  Sex: Female

DRUGS (3)
  1. PROPRANOLOL [Suspect]
     Indication: AGGRESSION
  2. RISPERIDONE [Suspect]
  3. CARBAMAZEPINE [Concomitant]

REACTIONS (1)
  - Weight increased [None]
